FAERS Safety Report 18039756 (Version 1)
Quarter: 2020Q3

REPORT INFORMATION
  Report Type: Spontaneous
  Country: US (occurrence: US)
  Receive Date: 20200717
  Receipt Date: 20200717
  Transmission Date: 20201103
  Serious: No
  Sender: FDA-Public Use
  Company Number: US-ACTELION-A-NJ2020-206579

PATIENT
  Sex: Female
  Weight: 36.51 kg

DRUGS (15)
  1. ZAVESCA [Suspect]
     Active Substance: MIGLUSTAT
     Indication: PRODUCT USED FOR UNKNOWN INDICATION
     Dosage: 100 MG, TID
     Route: 048
     Dates: start: 20191205
  2. PREVACID [Concomitant]
     Active Substance: LANSOPRAZOLE
  3. FELBAMATE. [Concomitant]
     Active Substance: FELBAMATE
  4. VIMPAT [Concomitant]
     Active Substance: LACOSAMIDE
  5. CALCIUM CARBONATE. [Concomitant]
     Active Substance: CALCIUM CARBONATE
  6. VITAMIN D3 [Concomitant]
     Active Substance: CHOLECALCIFEROL
  7. ZYRTEC [Concomitant]
     Active Substance: CETIRIZINE HYDROCHLORIDE
  8. KEPPRA [Concomitant]
     Active Substance: LEVETIRACETAM
  9. ALBUTEROL SULFATE. [Concomitant]
     Active Substance: ALBUTEROL SULFATE
  10. AYGESTIN [Concomitant]
     Active Substance: NORETHINDRONE ACETATE
  11. MULTIVITAMINS [VITAMINS NOS] [Concomitant]
     Active Substance: VITAMINS
  12. SODIUM CHLORIDE. [Concomitant]
     Active Substance: SODIUM CHLORIDE
  13. CLOBAZAM. [Concomitant]
     Active Substance: CLOBAZAM
  14. TYLENOL [Concomitant]
     Active Substance: ACETAMINOPHEN
  15. MIRALAX [Concomitant]
     Active Substance: POLYETHYLENE GLYCOL 3350

REACTIONS (1)
  - Erythema [Unknown]
